FAERS Safety Report 8949345 (Version 2)
Quarter: 2013Q1

REPORT INFORMATION
  Report Type: Spontaneous
  Country: BE (occurrence: BE)
  Receive Date: 20121206
  Receipt Date: 20130107
  Transmission Date: 20140127
  Serious: Yes (Other)
  Sender: FDA-Public Use
  Company Number: BE-PFIZER INC-2012147185

PATIENT
  Age: 83 Year
  Sex: Female

DRUGS (7)
  1. PANTOMED [Suspect]
     Indication: ABDOMINAL PAIN UPPER
     Dosage: 20 MG, DAILY
     Route: 048
     Dates: start: 201203, end: 20120612
  2. PANTOMED [Suspect]
     Dosage: 20 MG
     Route: 048
     Dates: start: 201208, end: 2012
  3. ASAFLOW [Concomitant]
     Dosage: UNK
  4. CALCIUM [Concomitant]
     Dosage: 600 MG, UNK
  5. D-CURE [Concomitant]
     Dosage: UNK
  6. EVISTA [Concomitant]
     Dosage: UNK
  7. TILDIEM [Concomitant]
     Dosage: 60 MG, UNK

REACTIONS (1)
  - Chronic lymphocytic leukaemia [Unknown]
